FAERS Safety Report 20119802 (Version 1)
Quarter: 2021Q4

REPORT INFORMATION
  Report Type: Report from Study
  Country: BR (occurrence: BR)
  Receive Date: 20211126
  Receipt Date: 20211126
  Transmission Date: 20220303
  Serious: Yes (Death, Other)
  Sender: FDA-Public Use
  Company Number: BR-NOVARTISPH-NVSC2021BR269597

PATIENT
  Age: 32 Year
  Sex: Female

DRUGS (2)
  1. LETROZOLE [Suspect]
     Active Substance: LETROZOLE
     Indication: Product used for unknown indication
     Dosage: 2.5 MG
     Route: 065
  2. RIBOCICLIB [Suspect]
     Active Substance: RIBOCICLIB
     Indication: Product used for unknown indication
     Dosage: 600 MG, USE OF 21 DAYS AND PAUSE OF 7 DAYS
     Route: 065

REACTIONS (10)
  - Disease progression [Fatal]
  - Neutropenia [Unknown]
  - Spinal fracture [Unknown]
  - Pain [Unknown]
  - Malaise [Unknown]
  - Anxiety [Unknown]
  - Alopecia [Unknown]
  - Diarrhoea [Unknown]
  - Anaemia [Unknown]
  - Bone lesion [Unknown]
